FAERS Safety Report 5569157-3 (Version None)
Quarter: 2007Q4

REPORT INFORMATION
  Report Type: 
  Country: None (occurrence: None)
  Receive Date: 20071220
  Receipt Date: 20070820
  Transmission Date: 20080405
  Serious: No
  Sender: FDA-Public Use
  Company Number: A0668683A

PATIENT
  Age: 67 Year
  Sex: Male
  Weight: 77.3 kg

DRUGS (2)
  1. AVODART [Suspect]
     Indication: BENIGN PROSTATIC HYPERPLASIA
     Dosage: .5MG PER DAY
     Route: 048
     Dates: start: 20070601
  2. TESTOSTERONE [Concomitant]
     Dosage: 25MGML TWICE PER DAY
     Dates: start: 20050101

REACTIONS (1)
  - LOSS OF LIBIDO [None]
